FAERS Safety Report 8320357-9 (Version None)
Quarter: 2012Q2

REPORT INFORMATION
  Report Type: 
  Country: None (occurrence: None)
  Receive Date: 20120430
  Receipt Date: 20120425
  Transmission Date: 20120825
  Serious: No
  Sender: FDA-Public Use
  Company Number: US-PFIZER INC-2012103283

PATIENT
  Sex: Male
  Weight: 68.027 kg

DRUGS (9)
  1. ZOCOR [Concomitant]
     Indication: BLOOD CHOLESTEROL INCREASED
     Dosage: UNK, 1X/DAY
  2. ACETYLSALICYLIC ACID [Concomitant]
     Indication: CARDIAC DISORDER
     Dosage: 81 MG, 1X/DAY
  3. CELEBREX [Concomitant]
     Dosage: UNK
  4. TEMAZEPAM [Concomitant]
     Indication: INSOMNIA
     Dosage: 30 MG, 1X/DAY
  5. CLOZAPINE [Concomitant]
     Indication: ANXIETY
     Dosage: UNK, 3X/DAY
  6. TOVIAZ [Suspect]
     Indication: HYPERTONIC BLADDER
     Dosage: 4 MG, 1X/DAY
     Route: 048
     Dates: start: 20120423
  7. FENOFIBRATE [Concomitant]
     Indication: BLOOD CHOLESTEROL INCREASED
     Dosage: UNK, 1X/DAY
  8. LITHIUM [Concomitant]
     Indication: BIPOLAR I DISORDER
     Dosage: 300 MG, 2X/DAY
  9. AVODART [Concomitant]
     Dosage: 0.5 MG, 1X/DAY

REACTIONS (1)
  - DRUG EFFECT DECREASED [None]
